FAERS Safety Report 8881739 (Version 2)
Quarter: 2012Q4

REPORT INFORMATION
  Report Type: 
  Country: US (occurrence: US)
  Receive Date: 20121102
  Receipt Date: 20121203
  Transmission Date: 20130627
  Serious: No
  Sender: FDA-Public Use
  Company Number: US-JNJFOC-20121012309

PATIENT
  Sex: Male

DRUGS (4)
  1. UNSPECIFIED FENTANYL TRANSDERMAL SYSTEM [Suspect]
     Indication: ANALGESIC THERAPY
     Route: 062
  2. UNSPECIFIED FENTANYL TRANSDERMAL SYSTEM [Suspect]
     Indication: ANALGESIC THERAPY
     Route: 062
  3. PERCOCET [Concomitant]
     Route: 048
  4. UNKNOWN MEDICATION [Concomitant]
     Route: 065

REACTIONS (3)
  - Hypersomnia [Recovered/Resolved]
  - Medication error [Recovered/Resolved]
  - Inappropriate schedule of drug administration [Recovered/Resolved]
